FAERS Safety Report 5052421-4 (Version None)
Quarter: 2006Q3

REPORT INFORMATION
  Report Type: 
  Country: None (occurrence: None)
  Receive Date: 20060717
  Receipt Date: 20060704
  Transmission Date: 20061208
  Serious: Yes (Hospitalization, Other)
  Sender: FDA-Public Use
  Company Number: PHBS2006IT10005

PATIENT
  Age: 43 Year
  Sex: Female

DRUGS (6)
  1. CYCLOSPORINE [Suspect]
     Indication: RENAL TRANSPLANT
     Dates: start: 19960101
  2. SIROLIMUS [Concomitant]
     Indication: RENAL TRANSPLANT
  3. SIMULECT [Suspect]
     Indication: RENAL TRANSPLANT
     Dates: start: 20050201
  4. TACROLIMUS [Concomitant]
     Indication: RENAL TRANSPLANT
     Dates: start: 20050201
  5. MYCOPHENOLATE MOFETIL [Concomitant]
     Indication: RENAL TRANSPLANT
  6. STEROIDS NOS [Concomitant]

REACTIONS (14)
  - ANTIBODY TEST POSITIVE [None]
  - BLOOD BILIRUBIN INCREASED [None]
  - BLOOD LACTATE DEHYDROGENASE INCREASED [None]
  - CYTOMEGALOVIRUS INFECTION [None]
  - GRAFT COMPLICATION [None]
  - HAEMODIALYSIS [None]
  - HAEMOLYTIC URAEMIC SYNDROME [None]
  - KIDNEY TRANSPLANT REJECTION [None]
  - LEUKOPENIA [None]
  - NEPHRECTOMY [None]
  - PYREXIA [None]
  - RED BLOOD CELL ABNORMALITY [None]
  - RENAL DISORDER [None]
  - RENAL FAILURE [None]
